FAERS Safety Report 4830691-2 (Version None)
Quarter: 2005Q4

REPORT INFORMATION
  Report Type: 
  Country: None (occurrence: None)
  Receive Date: 20051114
  Receipt Date: 20051107
  Transmission Date: 20060501
  Serious: Yes (Other)
  Sender: FDA-Public Use
  Company Number: HQWYE439807NOV05

PATIENT
  Age: 21 Year
  Sex: Male

DRUGS (7)
  1. PANTO (PANTOPRAZOLE, INJECTION) [Suspect]
     Indication: GASTROINTESTINAL ULCER HAEMORRHAGE
     Dosage: 40 MG 2X PER 1 DAY, INTRAVENOUS
     Route: 042
     Dates: start: 20031110, end: 20031113
  2. HEPARIN [Concomitant]
  3. CLONAZEPAM [Concomitant]
  4. TYLENOL [Concomitant]
  5. KYTRIL (GRANISETERON) [Concomitant]
  6. CHLORAL HYDRATE (CHLORAL HYDRATE) [Concomitant]
  7. BACLOFEN [Concomitant]

REACTIONS (2)
  - CONDITION AGGRAVATED [None]
  - LEUKOPENIA [None]
